FAERS Safety Report 14045995 (Version 2)
Quarter: 2018Q1

REPORT INFORMATION
  Report Type: Spontaneous
  Country: US (occurrence: US)
  Receive Date: 20171005
  Receipt Date: 20180227
  Transmission Date: 20180508
  Serious: Yes (Other)
  Sender: FDA-Public Use
  Company Number: US-PFIZER INC-2017426209

PATIENT
  Age: 60 Year
  Sex: Female
  Weight: 106.1 kg

DRUGS (2)
  1. XELJANZ [Suspect]
     Active Substance: TOFACITINIB CITRATE
     Indication: RHEUMATOID ARTHRITIS
     Dosage: 5 MG, TWICE DAILY
     Route: 048
     Dates: start: 2012
  2. GABAPENTIN. [Concomitant]
     Active Substance: GABAPENTIN
     Dosage: UNK, AT THE MAX DOSE SHE CAN TAKE
     Dates: start: 2013

REACTIONS (7)
  - Neuropathy peripheral [Not Recovered/Not Resolved]
  - Upper respiratory tract infection [Unknown]
  - Condition aggravated [Unknown]
  - Weight fluctuation [Unknown]
  - Malaise [Recovered/Resolved]
  - Pneumonia [Recovered/Resolved]
  - Influenza [Recovered/Resolved]

NARRATIVE: CASE EVENT DATE: 2013
